FAERS Safety Report 6640914-5 (Version None)
Quarter: 2010Q1

REPORT INFORMATION
  Report Type: 
  Country: None (occurrence: None)
  Receive Date: 20100318
  Receipt Date: 20100308
  Transmission Date: 20100710
  Serious: Yes (Hospitalization)
  Sender: FDA-Public Use
  Company Number: FR-WYE-H14041110

PATIENT
  Age: 77 Year
  Sex: Female

DRUGS (5)
  1. CORDARONE [Suspect]
     Indication: CARDIAC DISORDER
     Dosage: 200 MG TABLET, UNSPECIFIED DOSE
     Route: 048
     Dates: start: 20090924, end: 20091002
  2. FLECAINIDE ACETATE [Suspect]
     Indication: CARDIAC DISORDER
     Route: 048
     Dates: start: 20091002, end: 20091005
  3. INNOHEP [Suspect]
     Indication: VENOUS THROMBOSIS
     Dosage: UNSPECIFIED
     Route: 048
     Dates: start: 20090924, end: 20091005
  4. PREVISCAN [Suspect]
     Indication: MYOCARDIAL ISCHAEMIA
     Dosage: UNSPECIFIED
     Route: 048
     Dates: start: 20090924, end: 20091005
  5. CARDENSIEL [Suspect]
     Indication: CARDIAC DISORDER
     Dosage: UNSPECIFIED
     Route: 048
     Dates: start: 20090924, end: 20091002

REACTIONS (4)
  - DYSPEPSIA [None]
  - LIP OEDEMA [None]
  - OESOPHAGEAL PAIN [None]
  - RASH MACULO-PAPULAR [None]
